FAERS Safety Report 7579704-8 (Version None)
Quarter: 2011Q2

REPORT INFORMATION
  Report Type: 
  Country: None (occurrence: None)
  Receive Date: 20110525
  Receipt Date: 20110308
  Transmission Date: 20111010
  Serious: No
  Sender: FDA-Public Use
  Company Number: 324607

PATIENT
  Age: 62 Year
  Sex: Female

DRUGS (6)
  1. LANTUS [Concomitant]
  2. IMODIUM [Concomitant]
  3. VICTOZA [Suspect]
     Indication: TYPE 2 DIABETES MELLITUS
     Dosage: 1.8 MG, QD, SUBCUTANEOUS
     Route: 058
  4. GLYBURIDE [Concomitant]
  5. LISINOPRIL [Concomitant]
  6. ACTOSE (PIOGLITAZONE HYDROCHLORIDE) [Concomitant]

REACTIONS (1)
  - DIARRHOEA [None]
